FAERS Safety Report 22189576 (Version 1)
Quarter: 2023Q2

REPORT INFORMATION
  Report Type: Report from Study
  Country: CA (occurrence: CA)
  Receive Date: 20230410
  Receipt Date: 20230410
  Transmission Date: 20230722
  Serious: Yes (Other)
  Sender: FDA-Public Use
  Company Number: CA-CELLTRION INC.-2023CA006933

PATIENT

DRUGS (2)
  1. TRUXIMA [Suspect]
     Active Substance: RITUXIMAB-ABBS
     Indication: Immune thrombocytopenia
     Dosage: 950 MG WEEKLY FOR 4 DOSES (QUANTITY GIVEN: 8 X 500 MG VIALS = 4000 MG IN TOTAL)
     Route: 042
  2. TRUXIMA [Suspect]
     Active Substance: RITUXIMAB-ABBS
     Indication: Disease recurrence

REACTIONS (3)
  - Immune thrombocytopenia [Unknown]
  - Disease recurrence [Unknown]
  - Off label use [Unknown]
